FAERS Safety Report 6377302-5 (Version None)
Quarter: 2009Q3

REPORT INFORMATION
  Report Type: 
  Country: None (occurrence: None)
  Receive Date: 20090925
  Receipt Date: 20090914
  Transmission Date: 20100115
  Serious: Yes (Death)
  Sender: FDA-Public Use
  Company Number: ES-WATSON-2009-07519

PATIENT
  Age: 49 Year
  Sex: Male

DRUGS (5)
  1. ETOPOSIDE [Suspect]
     Indication: LUNG NEOPLASM MALIGNANT
     Dosage: 100 MG/M2, DAYS 1-3
     Route: 042
  2. CYCLOPHOSPHAMIDE [Suspect]
     Indication: LUNG NEOPLASM MALIGNANT
     Dosage: 400 MG/M2, DAYS 1-3
     Route: 042
  3. ADRIAMYCIN PFS [Suspect]
     Indication: LUNG NEOPLASM MALIGNANT
     Dosage: 40 MG/M2, DAY 1
     Route: 042
  4. CISPLATIN [Suspect]
     Indication: LUNG NEOPLASM MALIGNANT
     Dosage: 100 MG/M2, DAY 2
     Route: 042
  5. VINCRISTINE [Suspect]
     Indication: LUNG NEOPLASM MALIGNANT
     Dosage: 2 MG, DAY 3
     Route: 042

REACTIONS (3)
  - ACUTE HEPATIC FAILURE [None]
  - HEPATITIS CHOLESTATIC [None]
  - INFECTION [None]
